FAERS Safety Report 5395104-3 (Version None)
Quarter: 2007Q3

REPORT INFORMATION
  Report Type: 
  Country: None (occurrence: None)
  Receive Date: 20070718
  Receipt Date: 20070110
  Transmission Date: 20080115
  Serious: Yes (Hospitalization, Disabling, Other)
  Sender: FDA-Public Use
  Company Number: 2006131511

PATIENT
  Sex: Female
  Weight: 61.2 kg

DRUGS (2)
  1. CELEBREX [Suspect]
     Indication: INFLAMMATION
     Dosage: (200 MG,AS NECESSARY), ORAL
     Route: 048
     Dates: start: 20010831
  2. CELEBREX [Suspect]
     Indication: PAIN
     Dosage: (200 MG,AS NECESSARY), ORAL
     Route: 048
     Dates: start: 20010831

REACTIONS (3)
  - ANXIETY [None]
  - CEREBROVASCULAR ACCIDENT [None]
  - DEPRESSION [None]
